FAERS Safety Report 19517455 (Version 7)
Quarter: 2023Q4

REPORT INFORMATION
  Report Type: Report from Study
  Country: PT (occurrence: PT)
  Receive Date: 20210712
  Receipt Date: 20231214
  Transmission Date: 20240109
  Serious: Yes (Other)
  Sender: FDA-Public Use
  Company Number: PT-CELLTRION INC.-2021PT009202

PATIENT

DRUGS (10)
  1. HERCEPTIN [Suspect]
     Active Substance: TRASTUZUMAB
     Indication: HER2 positive breast cancer
     Dosage: 600 MG, 3 WEEK, MOST RECENT DOSE PRIOR TO THE EVENT: 13/JAN/2020
     Route: 042
     Dates: start: 20170504, end: 20180920
  2. TRASTUZUMAB [Suspect]
     Active Substance: TRASTUZUMAB
     Indication: Breast cancer metastatic
     Dosage: 600 MG EVERY 3 WEEKS
     Route: 042
     Dates: start: 20170504, end: 20180920
  3. FULVESTRANT [Suspect]
     Active Substance: FULVESTRANT
     Indication: Breast cancer metastatic
     Dosage: 500 MG EVERY 3 WEEKS
     Route: 058
     Dates: start: 20190111, end: 20200724
  4. LETROZOLE [Suspect]
     Active Substance: LETROZOLE
     Indication: Breast cancer metastatic
     Dosage: EVERY 1 DAY
     Route: 048
     Dates: start: 20171124, end: 20180920
  5. PERTUZUMAB [Suspect]
     Active Substance: PERTUZUMAB
     Indication: Breast cancer metastatic
     Dosage: 420 MG EVERY 3 WEEKS
     Route: 042
     Dates: start: 20170504, end: 20180920
  6. GEMCITABINE [Suspect]
     Active Substance: GEMCITABINE
     Indication: Breast cancer metastatic
     Dosage: UNK
     Route: 065
     Dates: start: 20200908
  7. CARBOPLATIN [Suspect]
     Active Substance: CARBOPLATIN
     Indication: Breast cancer metastatic
     Dosage: UNK
     Route: 042
     Dates: start: 20200908
  8. DOCETAXEL [Suspect]
     Active Substance: DOCETAXEL\DOCETAXEL ANHYDROUS
     Indication: Breast cancer metastatic
     Dosage: 100 MG/M2 EVERY 3 WEEKS
     Route: 042
     Dates: start: 20170504, end: 20170922
  9. ADO-TRASTUZUMAB EMTANSINE [Suspect]
     Active Substance: ADO-TRASTUZUMAB EMTANSINE
     Indication: Breast cancer metastatic
     Dosage: 230 MG EVERY 3 WEEKS
     Route: 042
     Dates: start: 20181130, end: 20200724
  10. ESCITALOPRAM [Concomitant]
     Active Substance: ESCITALOPRAM OXALATE
     Dosage: ONGOING = CHECKED
     Dates: start: 20180505

REACTIONS (2)
  - Neutropenia [Unknown]
  - Overdose [Unknown]

NARRATIVE: CASE EVENT DATE: 20200929
